FAERS Safety Report 23639667 (Version 3)
Quarter: 2024Q2

REPORT INFORMATION
  Report Type: Spontaneous
  Country: BR (occurrence: BR)
  Receive Date: 20240316
  Receipt Date: 20240402
  Transmission Date: 20240715
  Serious: No
  Sender: FDA-Public Use
  Company Number: BR-ORGANON-O2403BRA001357

PATIENT
  Sex: Female

DRUGS (2)
  1. NUVARING [Suspect]
     Active Substance: ETHINYL ESTRADIOL\ETONOGESTREL
     Dosage: 1 DOSAGE FORM VAGINAL RING
     Route: 067
  2. CREVAGIN [Concomitant]
     Dosage: UNK
     Route: 065

REACTIONS (1)
  - Pregnancy test false positive [Unknown]
